FAERS Safety Report 18402031 (Version 3)
Quarter: 2020Q4

REPORT INFORMATION
  Report Type: Report from Study
  Country: None (occurrence: US)
  Receive Date: 20201020
  Receipt Date: 20201124
  Transmission Date: 20210114
  Serious: Yes (Other)
  Sender: FDA-Public Use
  Company Number: US-ABBVIE-20K-163-3513689-00

PATIENT
  Age: 79 Year
  Sex: Male

DRUGS (12)
  1. ATORVASTATIN [Concomitant]
     Active Substance: ATORVASTATIN
     Indication: BLOOD CHOLESTEROL INCREASED
  2. HUMIRA [Suspect]
     Active Substance: ADALIMUMAB
     Indication: CROHN^S DISEASE
     Route: 058
     Dates: start: 202004
  3. CETIRIZINE [Concomitant]
     Active Substance: CETIRIZINE HYDROCHLORIDE
     Indication: HYPERSENSITIVITY
  4. ALLOPURINOL. [Concomitant]
     Active Substance: ALLOPURINOL
     Indication: NEPHROLITHIASIS
  5. EZETIMIBE. [Concomitant]
     Active Substance: EZETIMIBE
     Indication: BLOOD CHOLESTEROL INCREASED
  6. METOPROLOL TARTRATE. [Concomitant]
     Active Substance: METOPROLOL TARTRATE
     Indication: HYPERTENSION
  7. METFORMIN [Concomitant]
     Active Substance: METFORMIN HYDROCHLORIDE
     Indication: BLOOD GLUCOSE INCREASED
  8. VITAMIN D [Concomitant]
     Active Substance: VITAMIN D NOS
     Indication: VITAMIN D DEFICIENCY
  9. HUMIRA [Suspect]
     Active Substance: ADALIMUMAB
     Route: 058
  10. ASPIRIN. [Concomitant]
     Active Substance: ASPIRIN
     Indication: ANTICOAGULANT THERAPY
  11. CHLORPROMAZINE. [Concomitant]
     Active Substance: CHLORPROMAZINE
     Indication: HICCUPS
  12. LISINOPRIL. [Concomitant]
     Active Substance: LISINOPRIL
     Indication: HYPERTENSION

REACTIONS (9)
  - Abdominal hernia [Recovering/Resolving]
  - Cholecystitis infective [Unknown]
  - Impaired healing [Unknown]
  - Procedural pain [Recovered/Resolved]
  - Post procedural haemorrhage [Recovered/Resolved]
  - Scrotal haematoma [Recovering/Resolving]
  - Sneezing [Unknown]
  - Weight increased [Recovering/Resolving]
  - Pain [Unknown]

NARRATIVE: CASE EVENT DATE: 2020
